FAERS Safety Report 9372660 (Version 1)
Quarter: 2013Q2

REPORT INFORMATION
  Report Type: Report from Study
  Country: US (occurrence: US)
  Receive Date: 20130627
  Receipt Date: 20130627
  Transmission Date: 20140414
  Serious: Yes (Other)
  Sender: FDA-Public Use
  Company Number: US-MYLANLABS-2013S1004827

PATIENT
  Age: 66 Year
  Sex: Female
  Weight: 85 kg

DRUGS (27)
  1. CLOZAPINE TABLETS [Suspect]
     Indication: PSYCHOTIC DISORDER
     Dosage: X1
     Route: 048
     Dates: start: 20130131
  2. CLOZAPINE TABLETS [Suspect]
     Indication: DEMENTIA WITH LEWY BODIES
     Dosage: X1
     Route: 048
     Dates: start: 20130131
  3. CLOZAPINE TABLETS [Suspect]
     Indication: PSYCHOTIC DISORDER
     Dosage: X 4 DAYS
     Route: 048
  4. CLOZAPINE TABLETS [Suspect]
     Indication: DEMENTIA WITH LEWY BODIES
     Dosage: X 4 DAYS
     Route: 048
  5. CLOZAPINE TABLETS [Suspect]
     Indication: PSYCHOTIC DISORDER
     Dosage: X1
     Route: 048
     Dates: end: 20130205
  6. CLOZAPINE TABLETS [Suspect]
     Indication: DEMENTIA WITH LEWY BODIES
     Dosage: X1
     Route: 048
     Dates: end: 20130205
  7. CLOZAPINE TABLETS [Suspect]
     Indication: PSYCHOTIC DISORDER
     Route: 048
     Dates: start: 20130215, end: 20130224
  8. CLOZAPINE TABLETS [Suspect]
     Indication: DEMENTIA WITH LEWY BODIES
     Route: 048
     Dates: start: 20130215, end: 20130224
  9. DUONEB [Concomitant]
     Dates: start: 20130131
  10. HEPARIN [Concomitant]
     Dates: start: 20130131
  11. PROTONIX [Concomitant]
     Dates: start: 20130131
  12. GEODON [Concomitant]
     Dates: start: 20130131
  13. COLACE [Concomitant]
     Dates: start: 20130131
  14. KCL [Concomitant]
     Dates: start: 20130131
  15. CARDIZEM [Concomitant]
     Dates: start: 20130131
  16. FOLIC ACID [Concomitant]
     Dates: start: 20130131
  17. ADVAIR [Concomitant]
     Dates: start: 20130131
  18. SPIRIVA [Concomitant]
     Dates: start: 20130131
  19. IRON [Concomitant]
     Dates: start: 20130131
  20. NYSTATIN [Concomitant]
     Dates: start: 20130131
  21. VALIUM [Concomitant]
     Dates: start: 20130131
  22. APAP [Concomitant]
     Dates: start: 20130131
  23. LIPITOR [Concomitant]
     Dates: start: 20130131
  24. TRAZODONE [Concomitant]
     Dates: start: 20130131
  25. QUETIAPINE [Concomitant]
     Dates: start: 20130201
  26. LIDODERM [Concomitant]
     Dates: start: 20130201
  27. FOSFOMYCIN [Concomitant]
     Dates: start: 20130204

REACTIONS (1)
  - Granulocytopenia [Recovered/Resolved]
